FAERS Safety Report 5363966-1 (Version None)
Quarter: 2007Q2

REPORT INFORMATION
  Report Type: 
  Country: None (occurrence: None)
  Receive Date: 20070530
  Receipt Date: 20070103
  Transmission Date: 20071010
  Serious: No
  Sender: FDA-Public Use
  Company Number: 2007PV027768

PATIENT
  Age: 80 Year
  Sex: Male
  Weight: 108.8633 kg

DRUGS (4)
  1. BYETTA [Suspect]
     Indication: DIABETES MELLITUS NON-INSULIN-DEPENDENT
     Dosage: 10 + 5 + 10 + 5 MCG; BID; SC
     Route: 058
     Dates: start: 20060701, end: 20060801
  2. BYETTA [Suspect]
     Indication: DIABETES MELLITUS NON-INSULIN-DEPENDENT
     Dosage: 10 + 5 + 10 + 5 MCG; BID; SC
     Route: 058
     Dates: start: 20060801, end: 20060901
  3. BYETTA [Suspect]
     Indication: DIABETES MELLITUS NON-INSULIN-DEPENDENT
     Dosage: 10 + 5 + 10 + 5 MCG; BID; SC
     Route: 058
     Dates: start: 20060901, end: 20061001
  4. BYETTA [Suspect]
     Indication: DIABETES MELLITUS NON-INSULIN-DEPENDENT
     Dosage: 10 + 5 + 10 + 5 MCG; BID; SC
     Route: 058
     Dates: start: 20061001

REACTIONS (3)
  - ENERGY INCREASED [None]
  - NAUSEA [None]
  - WEIGHT DECREASED [None]
